FAERS Safety Report 13067722 (Version 2)
Quarter: 2017Q1

REPORT INFORMATION
  Report Type: Report from Study
  Country: US (occurrence: US)
  Receive Date: 20161228
  Receipt Date: 20170125
  Transmission Date: 20170428
  Serious: Yes (Other)
  Sender: FDA-Public Use
  Company Number: PHEH2016US033480

PATIENT
  Age: 5 Year
  Sex: Female
  Weight: 19.4 kg

DRUGS (1)
  1. ILARIS [Suspect]
     Active Substance: CANAKINUMAB
     Indication: JUVENILE IDIOPATHIC ARTHRITIS
     Dosage: Q 28 DAYS
     Route: 058
     Dates: start: 20160401

REACTIONS (3)
  - Juvenile idiopathic arthritis [Recovering/Resolving]
  - Inappropriate schedule of drug administration [Unknown]
  - Pyrexia [Recovering/Resolving]

NARRATIVE: CASE EVENT DATE: 20161210
